FAERS Safety Report 25012310 (Version 3)
Quarter: 2025Q3

REPORT INFORMATION
  Report Type: Report from Study
  Country: US (occurrence: US)
  Receive Date: 20250226
  Receipt Date: 20250711
  Transmission Date: 20251021
  Serious: No
  Sender: ACADIA PHARMACEUTICALS
  Company Number: US-ACADIA PHARMACEUTICALS INC.-ACA-2025-PIM-001940

PATIENT

DRUGS (3)
  1. NUPLAZID [Suspect]
     Active Substance: PIMAVANSERIN TARTRATE
     Indication: Parkinson^s disease
     Dosage: 34 MILLIGRAM, QD
     Route: 048
     Dates: start: 20181214
  2. IBUPROFEN [Concomitant]
     Active Substance: IBUPROFEN
  3. SEROQUEL [Concomitant]
     Active Substance: QUETIAPINE FUMARATE

REACTIONS (7)
  - Condition aggravated [Unknown]
  - Dry mouth [Unknown]
  - Dysgeusia [Unknown]
  - Eye irritation [Unknown]
  - Oral discomfort [Unknown]
  - Throat irritation [Unknown]
  - Product dose omission issue [Unknown]
